FAERS Safety Report 19592689 (Version 1)
Quarter: 2021Q3

REPORT INFORMATION
  Report Type: Spontaneous
  Country: US (occurrence: US)
  Receive Date: 20210721
  Receipt Date: 20210721
  Transmission Date: 20211014
  Serious: Yes (Other)
  Sender: FDA-Public Use
  Company Number: None

PATIENT
  Age: 57 Year
  Sex: Female
  Weight: 81 kg

DRUGS (3)
  1. CPAP MACHINE [Concomitant]
  2. OFLOXACIN 0.3% ? DISTRIBUTED BY RISING PHARMACEUTICALS [Suspect]
     Active Substance: OFLOXACIN
     Indication: EYE INFECTION
     Dosage: ?          QUANTITY:1 DROP(S);?
     Route: 047
     Dates: start: 20210715, end: 20210720
  3. SERTRALINE [Concomitant]
     Active Substance: SERTRALINE HYDROCHLORIDE

REACTIONS (4)
  - Hallucination, auditory [None]
  - Psychotic disorder [None]
  - Abnormal behaviour [None]
  - Derealisation [None]

NARRATIVE: CASE EVENT DATE: 20210717
